FAERS Safety Report 11289146 (Version 1)
Quarter: 2015Q3

REPORT INFORMATION
  Report Type: Spontaneous
  Country: TR (occurrence: TR)
  Receive Date: 20150721
  Receipt Date: 20150721
  Transmission Date: 20151125
  Serious: Yes (Other)
  Sender: FDA-Public Use
  Company Number: PHHY2015TR084007

PATIENT
  Age: 16 Year
  Sex: Female

DRUGS (2)
  1. NAPROXEN. [Suspect]
     Active Substance: NAPROXEN
     Indication: ABDOMINAL PAIN
     Route: 065
  2. FLURBIPROFEN. [Suspect]
     Active Substance: FLURBIPROFEN
     Indication: ABDOMINAL PAIN
     Route: 065

REACTIONS (4)
  - Rash [Recovering/Resolving]
  - Sinusitis [Recovering/Resolving]
  - Aspirin-exacerbated respiratory disease [Recovering/Resolving]
  - Lip swelling [Recovering/Resolving]
